FAERS Safety Report 15595877 (Version 1)
Quarter: 2018Q4

REPORT INFORMATION
  Report Type: Spontaneous
  Country: US (occurrence: US)
  Receive Date: 20181107
  Receipt Date: 20181107
  Transmission Date: 20190205
  Serious: No
  Sender: FDA-Public Use
  Company Number: US-ASTRAZENECA-2018SF31866

PATIENT
  Sex: Female

DRUGS (2)
  1. XOLAIR [Interacting]
     Active Substance: OMALIZUMAB
     Route: 065
  2. SYMBICORT [Suspect]
     Active Substance: BUDESONIDE\FORMOTEROL FUMARATE DIHYDRATE
     Indication: ASTHMA
     Dosage: 160.0UG UNKNOWN
     Route: 007

REACTIONS (2)
  - Peripheral swelling [Unknown]
  - Drug interaction [Unknown]
